FAERS Safety Report 5445008-2 (Version None)
Quarter: 2007Q3

REPORT INFORMATION
  Report Type: 
  Country: None (occurrence: None)
  Receive Date: 20070906
  Receipt Date: 20070829
  Transmission Date: 20080115
  Serious: Yes (Congenital Anomaly)
  Sender: FDA-Public Use
  Company Number: US-ROCHE-510331

PATIENT
  Age: 29 Year
  Sex: Female
  Weight: 79.4 kg

DRUGS (4)
  1. COPEGUS [Suspect]
     Dosage: PATIENT WAS TAKING ^MAXIMUM^ DOSE.
     Route: 048
     Dates: start: 20060501, end: 20060815
  2. PEGASYS [Suspect]
     Indication: HEPATITIS C
     Route: 065
  3. EFFEXOR [Concomitant]
     Indication: DEPRESSION
     Route: 048
  4. COMPAZINE [Concomitant]
     Indication: NAUSEA
     Route: 048

REACTIONS (7)
  - BONE DEVELOPMENT ABNORMAL [None]
  - BONE METABOLISM DISORDER [None]
  - CEREBRAL VENTRICLE DILATATION [None]
  - CYSTIC LYMPHANGIOMA [None]
  - ILL-DEFINED DISORDER [None]
  - SKIN OEDEMA [None]
  - ULTRASOUND ANTENATAL SCREEN [None]
